FAERS Safety Report 13875948 (Version 2)
Quarter: 2019Q1

REPORT INFORMATION
  Report Type: Spontaneous
  Country: FR (occurrence: FR)
  Receive Date: 20170817
  Receipt Date: 20190122
  Transmission Date: 20190417
  Serious: Yes (Life-Threatening, Hospitalization, Congenital Anomaly, Other)
  Sender: FDA-Public Use
  Company Number: FR-AUROBINDO-AUR-APL-2017-38678

PATIENT
  Age: 8 Year
  Sex: Male

DRUGS (4)
  1. CARBAMAZEPINE. [Suspect]
     Active Substance: CARBAMAZEPINE
     Indication: EPILEPSY
  2. CARBAMAZEPINE. [Suspect]
     Active Substance: CARBAMAZEPINE
     Indication: PARTIAL SEIZURES
  3. LEVETIRACETAM. [Suspect]
     Active Substance: LEVETIRACETAM
     Indication: SEIZURE
     Dosage: UNK
     Route: 065
  4. CARBAMAZEPINE. [Suspect]
     Active Substance: CARBAMAZEPINE
     Indication: PARTIAL SEIZURES
     Dosage: UNK
     Route: 065

REACTIONS (32)
  - Anaemia [Recovering/Resolving]
  - Drug reaction with eosinophilia and systemic symptoms [Recovered/Resolved]
  - Pyrexia [Recovering/Resolving]
  - Inflammation [Recovering/Resolving]
  - Diarrhoea [Recovering/Resolving]
  - Activated partial thromboplastin time prolonged [Recovered/Resolved]
  - Cough [Recovered/Resolved]
  - Hyponatraemia [Recovering/Resolving]
  - Lymphopenia [Recovering/Resolving]
  - Cheilitis [Recovering/Resolving]
  - Agranulocytosis [Recovered/Resolved]
  - Nephrotic syndrome [Recovering/Resolving]
  - Hypertriglyceridaemia [Recovering/Resolving]
  - Abdominal pain upper [Recovering/Resolving]
  - Hepatic failure [Recovered/Resolved]
  - Hepatocellular injury [Recovering/Resolving]
  - Oedema peripheral [Recovering/Resolving]
  - Hepatitis [Recovered/Resolved]
  - Eosinophil count increased [Recovering/Resolving]
  - Dermatitis exfoliative generalised [Recovering/Resolving]
  - Rash maculo-papular [Recovering/Resolving]
  - Febrile neutropenia [Recovering/Resolving]
  - Interstitial lung disease [Recovering/Resolving]
  - Rales [Recovering/Resolving]
  - Therapeutic product cross-reactivity [Recovered/Resolved]
  - Urticaria [Recovered/Resolved]
  - Prothrombin time abnormal [Recovered/Resolved]
  - Roseolovirus test positive [Recovered/Resolved]
  - Mycoplasma infection [Recovering/Resolving]
  - Face oedema [Recovering/Resolving]
  - Hypocalcaemia [Recovering/Resolving]
  - Colitis [Recovering/Resolving]
